FAERS Safety Report 8134387-3 (Version None)
Quarter: 2012Q1

REPORT INFORMATION
  Report Type: 
  Country: None (occurrence: None)
  Receive Date: 20120209
  Receipt Date: 20120202
  Transmission Date: 20120608
  Serious: No
  Sender: FDA-Public Use
  Company Number: 1000027158

PATIENT
  Age: 33 Year
  Sex: Female
  Weight: 83.01 kg

DRUGS (17)
  1. VIIBRYD [Suspect]
     Indication: DEPRESSION
     Dosage: 10 MG (10 MG, 1 IN 1 D), ORAL
     Route: 048
     Dates: start: 20120112, end: 20120115
  2. ALPRAZOLAM [Concomitant]
  3. CAPSAICIN(CAPSAICIN)(CAPSAICIN) [Concomitant]
  4. GABAPENTIN [Concomitant]
  5. HYDROXYZINE [Concomitant]
  6. ANUCORT-HC(HYDROCORTISONE ACETATE)(HYDROCORTISONE ACETATE) [Concomitant]
  7. CARISOPRODOL [Concomitant]
  8. PROCTOSOL(PROCTOSOL)(PROCTOSOL) [Concomitant]
  9. TYLENOL ARTHRITIS(PARACETAMOL)(PARACETAMOL) [Concomitant]
  10. TRAMADOL HCL [Concomitant]
  11. CETIRIZINE(CETIRIZINE)(CETIRIZINE) [Concomitant]
  12. DOCUSATE SODIUM(DOCUSATE SODIUM)(DOCUSATE SODIUM) [Concomitant]
  13. OMEPRAZOLE [Concomitant]
  14. RANITIDINE [Concomitant]
  15. CYMBALTA(DULOXETINE HYDROCHLORIDE)(DULOXETINE HYDROCHLORIDE) [Concomitant]
  16. FLUTICASONE PROPIONATE(FLUTICASONE PROPIONATE)(FLUTICASONE PROPIONATE) [Concomitant]
  17. PROAIR HFA(SALBUTAMCL SULFATE) (SALBUTAMOL SULFATE) [Concomitant]

REACTIONS (8)
  - CONVULSION [None]
  - TREMOR [None]
  - DISTURBANCE IN ATTENTION [None]
  - DEPRESSION [None]
  - ABNORMAL BEHAVIOUR [None]
  - FATIGUE [None]
  - INSOMNIA [None]
  - PARAESTHESIA [None]
